FAERS Safety Report 11782205 (Version 2)
Quarter: 2017Q3

REPORT INFORMATION
  Report Type: Spontaneous
  Country: US (occurrence: US)
  Receive Date: 20151127
  Receipt Date: 20170727
  Transmission Date: 20171127
  Serious: Yes (Other)
  Sender: FDA-Public Use
  Company Number: US-ASTRAZENECA-2015SF18484

PATIENT
  Sex: Female
  Weight: 118.8 kg

DRUGS (19)
  1. SYMBICORT [Suspect]
     Active Substance: BUDESONIDE\FORMOTEROL FUMARATE DIHYDRATE
     Indication: CHRONIC OBSTRUCTIVE PULMONARY DISEASE
     Dosage: 160/4.5 MCG 2 PUFFS IN THE MORNING AND 2 PUFFS AT NIGHT, TWO TIMES A DAY
     Route: 055
     Dates: start: 201509
  2. SYMBICORT [Suspect]
     Active Substance: BUDESONIDE\FORMOTEROL FUMARATE DIHYDRATE
     Indication: CHRONIC OBSTRUCTIVE PULMONARY DISEASE
     Dosage: 160/4.5 MCG 2 PUFFS AS NEEDED AS REQUIRED
     Route: 055
  3. DALIRESP [Suspect]
     Active Substance: ROFLUMILAST
     Indication: BRONCHITIS CHRONIC
     Route: 048
     Dates: start: 2011
  4. DIAZEPAM. [Concomitant]
     Active Substance: DIAZEPAM
     Indication: RESTLESS LEGS SYNDROME
  5. DALIRESP [Suspect]
     Active Substance: ROFLUMILAST
     Indication: CHRONIC OBSTRUCTIVE PULMONARY DISEASE
     Route: 048
     Dates: start: 2011
  6. DALIRESP [Suspect]
     Active Substance: ROFLUMILAST
     Indication: CHRONIC OBSTRUCTIVE PULMONARY DISEASE
     Route: 048
     Dates: start: 201509
  7. VALSARTAN WITH HCTZ [Concomitant]
     Indication: BLOOD PRESSURE ABNORMAL
  8. CARVEDILOL. [Concomitant]
     Active Substance: CARVEDILOL
     Indication: CARDIAC DISORDER
  9. OXYGEN. [Concomitant]
     Active Substance: OXYGEN
     Indication: DYSPNOEA
  10. CARVEDILOL. [Concomitant]
     Active Substance: CARVEDILOL
     Indication: BLOOD PRESSURE ABNORMAL
  11. TOLTERODINE L-TARTRATE [Concomitant]
     Active Substance: TOLTERODINE TARTRATE
     Indication: HYPERTONIC BLADDER
  12. SYMBICORT [Suspect]
     Active Substance: BUDESONIDE\FORMOTEROL FUMARATE DIHYDRATE
     Indication: CHRONIC OBSTRUCTIVE PULMONARY DISEASE
     Dosage: 160/4.5 MCG, 2 PUFFS TWICE A DAY
     Route: 055
  13. HUMALOG [Concomitant]
     Active Substance: INSULIN LISPRO
     Indication: DIABETES MELLITUS
  14. DIAZEPAM. [Concomitant]
     Active Substance: DIAZEPAM
     Indication: SLEEP DISORDER
  15. VALSARTAN WITH HCTZ [Concomitant]
     Indication: SWELLING
  16. METFORMIN HYDROCHLORIDE. [Concomitant]
     Active Substance: METFORMIN HYDROCHLORIDE
     Indication: DIABETES MELLITUS
  17. NOVOLOG [Concomitant]
     Active Substance: INSULIN ASPART
     Indication: DIABETES MELLITUS
  18. DALIRESP [Suspect]
     Active Substance: ROFLUMILAST
     Indication: BRONCHITIS CHRONIC
     Route: 048
     Dates: start: 201509
  19. OXYGEN. [Concomitant]
     Active Substance: OXYGEN
     Indication: CHRONIC OBSTRUCTIVE PULMONARY DISEASE

REACTIONS (12)
  - Visual impairment [Unknown]
  - Intentional product misuse [Unknown]
  - Vision blurred [Not Recovered/Not Resolved]
  - Pain [Recovered/Resolved]
  - Hypertonic bladder [Unknown]
  - Dyspnoea [Unknown]
  - Insomnia [Unknown]
  - Weight increased [Unknown]
  - Anxiety [Unknown]
  - Drug ineffective [Unknown]
  - Herpes zoster [Unknown]
  - Circumstance or information capable of leading to medication error [Unknown]
